FAERS Safety Report 5206911-1 (Version None)
Quarter: 2007Q1

REPORT INFORMATION
  Report Type: 
  Country: None (occurrence: None)
  Receive Date: 20070105
  Receipt Date: 20070105
  Transmission Date: 20070707
  Serious: Yes (Life-Threatening, Hospitalization)
  Sender: FDA-Public Use
  Company Number: None

PATIENT
  Age: 84 Year
  Sex: Female

DRUGS (11)
  1. LEPIRUDIN [Suspect]
     Indication: DEEP VEIN THROMBOSIS
     Dosage: VARIED IV INF
     Route: 042
     Dates: start: 20060813, end: 20060816
  2. LEPIRUDIN [Suspect]
     Indication: PULMONARY EMBOLISM
     Dosage: VARIED IV INF
     Route: 042
     Dates: start: 20060813, end: 20060816
  3. AMIODARONE HCL [Concomitant]
  4. FUROSEMIDE [Concomitant]
  5. FENTANYL TRANSDERMAL SYSTEM [Concomitant]
  6. AZTREONAM [Concomitant]
  7. HYDRALAZINE HCL [Concomitant]
  8. METOPROLOL SUCCINATE [Concomitant]
  9. RANITIDINE [Concomitant]
  10. VANCOMYCIN [Concomitant]
  11. METRONIDAZOLE [Concomitant]

REACTIONS (4)
  - ACTIVATED PARTIAL THROMBOPLASTIN TIME PROLONGED [None]
  - BLOOD CREATININE INCREASED [None]
  - CREATININE RENAL CLEARANCE DECREASED [None]
  - HAEMOGLOBIN DECREASED [None]
